FAERS Safety Report 18401738 (Version 5)
Quarter: 2021Q4

REPORT INFORMATION
  Report Type: Report from Study
  Country: CA (occurrence: CA)
  Receive Date: 20201019
  Receipt Date: 20211222
  Transmission Date: 20220303
  Serious: Yes (Other)
  Sender: FDA-Public Use
  Company Number: NVSC2020CA279792

PATIENT
  Age: 41 Year
  Sex: Female

DRUGS (9)
  1. GILENYA [Suspect]
     Active Substance: FINGOLIMOD HYDROCHLORIDE
     Indication: Relapsing-remitting multiple sclerosis
     Dosage: UNK
     Route: 048
     Dates: start: 20170529, end: 202004
  2. GILENYA [Suspect]
     Active Substance: FINGOLIMOD HYDROCHLORIDE
     Indication: Secondary progressive multiple sclerosis
     Dosage: UNK
     Route: 048
  3. MAYZENT [Suspect]
     Active Substance: SIPONIMOD
     Indication: Secondary progressive multiple sclerosis
     Dosage: 0.25 MG
     Route: 048
  4. MAYZENT [Suspect]
     Active Substance: SIPONIMOD
     Dosage: UNK
     Route: 048
     Dates: start: 20201105, end: 20210423
  5. VITAMIN D [Concomitant]
     Active Substance: VITAMIN D NOS
     Indication: Product used for unknown indication
     Dosage: 2 CO, QW
     Route: 065
  6. CELEBREX [Concomitant]
     Active Substance: CELECOXIB
     Indication: Product used for unknown indication
     Dosage: 200 MG 1 CO DIE PRN
     Route: 065
  7. AXERT [Concomitant]
     Active Substance: ALMOTRIPTAN MALATE
     Indication: Migraine
     Dosage: 12.5 MG, MAXIMUM 2 CO PER DAY AND MAXIMUM 4 CO PER WEEK
     Route: 065
  8. TYLENOL [Concomitant]
     Active Substance: ACETAMINOPHEN
     Indication: Product used for unknown indication
     Dosage: 200 MG,2 CO QID PRN, MAXIMUM 8 CO PER DAY
     Route: 065
  9. TYLENOL [Concomitant]
     Active Substance: ACETAMINOPHEN
     Dosage: UNK
     Route: 065

REACTIONS (17)
  - Secondary progressive multiple sclerosis [Unknown]
  - Multiple sclerosis relapse [Unknown]
  - Bell^s palsy [Unknown]
  - Facial paralysis [Unknown]
  - Pyrexia [Unknown]
  - Erythema [Unknown]
  - Malaise [Unknown]
  - Chills [Unknown]
  - Feeling hot [Unknown]
  - Abdominal pain upper [Unknown]
  - COVID-19 [Unknown]
  - Fatigue [Unknown]
  - Product use in unapproved indication [Unknown]
  - Headache [Unknown]
  - Asthenia [Unknown]
  - Back pain [Unknown]
  - Carpal tunnel syndrome [Unknown]

NARRATIVE: CASE EVENT DATE: 20200421
